FAERS Safety Report 23308088 (Version 1)
Quarter: 2023Q4

REPORT INFORMATION
  Report Type: Spontaneous
  Country: IT (occurrence: IT)
  Receive Date: 20231218
  Receipt Date: 20231218
  Transmission Date: 20240110
  Serious: Yes (Other)
  Sender: FDA-Public Use
  Company Number: IT-JNJFOC-20231230290

PATIENT

DRUGS (2)
  1. TOPAMAX [Suspect]
     Active Substance: TOPIRAMATE
     Indication: Product used for unknown indication
     Route: 048
  2. TALOFEN [Suspect]
     Active Substance: PROMAZINE HYDROCHLORIDE
     Indication: Product used for unknown indication
     Dosage: 25 MG/ML SOLUTION INJECT. 6 VIALS 2 ML
     Route: 048

REACTIONS (4)
  - Intentional self-injury [Unknown]
  - Intentional overdose [Unknown]
  - Sluggishness [Unknown]
  - Somnolence [Unknown]
